FAERS Safety Report 16011237 (Version 2)
Quarter: 2019Q2

REPORT INFORMATION
  Report Type: Spontaneous
  Country: US (occurrence: US)
  Receive Date: 20190227
  Receipt Date: 20190614
  Transmission Date: 20190711
  Serious: Yes (Other)
  Sender: FDA-Public Use
  Company Number: US-INSMED, INC.-US-INS-19-00467

PATIENT
  Sex: Female
  Weight: 48.58 kg

DRUGS (2)
  1. ARIKAYCE [Suspect]
     Active Substance: AMIKACIN
     Indication: MYCOBACTERIAL INFECTION
     Route: 055
     Dates: start: 20190125, end: 2019
  2. LAMIRA NEBULIZER SYSTEM [Suspect]
     Active Substance: DEVICE

REACTIONS (6)
  - Tongue discomfort [Unknown]
  - Throat irritation [Unknown]
  - Aphonia [Recovering/Resolving]
  - Dyspnoea [Unknown]
  - Lung disorder [Unknown]
  - Oral discomfort [Unknown]

NARRATIVE: CASE EVENT DATE: 2019
